FAERS Safety Report 7878464-0 (Version None)
Quarter: 2011Q4

REPORT INFORMATION
  Report Type: 
  Country: None (occurrence: None)
  Receive Date: 20111101
  Receipt Date: 20111020
  Transmission Date: 20120403
  Serious: Yes (Death, Other)
  Sender: FDA-Public Use
  Company Number: JP-UCBSA-044127

PATIENT
  Age: 80 Year
  Sex: Female

DRUGS (2)
  1. ZONISAMIDE [Concomitant]
     Indication: STATUS EPILEPTICUS
     Dosage: TOTAL DAILY DOSE: 200 MG
     Route: 048
  2. KEPPRA [Suspect]
     Indication: STATUS EPILEPTICUS
     Route: 048
     Dates: start: 20111005, end: 20111013

REACTIONS (2)
  - HEPATIC FUNCTION ABNORMAL [None]
  - PLATELET COUNT DECREASED [None]
